FAERS Safety Report 10009042 (Version 1)
Quarter: 2014Q1

REPORT INFORMATION
  Report Type: Spontaneous
  Country: US (occurrence: None)
  Receive Date: 20140228
  Receipt Date: 20140228
  Transmission Date: 20141002
  Serious: Yes (Other)
  Sender: FDA-Public Use
  Company Number: 225325

PATIENT
  Age: 51 Year
  Sex: Female

DRUGS (2)
  1. PICATO GEL [Suspect]
     Indication: ACTINIC KERATOSIS
     Dosage: 1 TUBE DAILY (1 IN 1 D), DERMAL
     Dates: start: 20131229
  2. ESCITALOPRAM (ESCITALOPRAM) [Concomitant]

REACTIONS (5)
  - Application site paraesthesia [None]
  - Application site discomfort [None]
  - Application site swelling [None]
  - Lip swelling [None]
  - Application site erythema [None]
